FAERS Safety Report 7071986-4 (Version None)
Quarter: 2010Q4

REPORT INFORMATION
  Report Type: 
  Country: None (occurrence: None)
  Receive Date: 20101029
  Receipt Date: 20091116
  Transmission Date: 20110411
  Serious: No
  Sender: FDA-Public Use
  Company Number: A0817230A

PATIENT
  Age: 78 Year
  Sex: Male

DRUGS (6)
  1. ADVAIR DISKUS 100/50 [Suspect]
     Indication: CHRONIC OBSTRUCTIVE PULMONARY DISEASE
     Route: 055
     Dates: start: 20090301, end: 20091028
  2. SYNTHROID [Concomitant]
  3. ASTELIN [Concomitant]
  4. VIBRAMYCIN [Concomitant]
  5. PREDNISONE [Concomitant]
  6. DIFLUCAN [Concomitant]

REACTIONS (1)
  - CANDIDIASIS [None]
